FAERS Safety Report 21252256 (Version 1)
Quarter: 2022Q3

REPORT INFORMATION
  Report Type: Other
  Country: ES (occurrence: ES)
  Receive Date: 20220825
  Receipt Date: 20220825
  Transmission Date: 20221027
  Serious: Yes (Hospitalization)
  Sender: FDA-Public Use
  Company Number: None

PATIENT

DRUGS (13)
  1. TELMISARTAN [Suspect]
     Active Substance: TELMISARTAN
     Indication: Hypertension
     Dosage: 40 MILLIGRAM
     Route: 048
     Dates: start: 20190227, end: 20210810
  2. CARVEDILOL [Suspect]
     Active Substance: CARVEDILOL
     Indication: Myocardial ischaemia
     Dosage: 25 MILLIGRAM
     Route: 048
     Dates: start: 20130306, end: 20210810
  3. OMEPRAZOL TARBIS [Concomitant]
     Indication: Type 2 diabetes mellitus
     Dosage: 20 MILLIGRAM
     Route: 048
     Dates: start: 20100512
  4. PARACETAMOL PHARMA COMBIX [Concomitant]
     Indication: Product used for unknown indication
     Dosage: 1 GRAM
     Route: 048
     Dates: start: 20130311
  5. LORAZEPAM [Concomitant]
     Active Substance: LORAZEPAM
     Indication: Insomnia
     Dosage: 1 MILLIGRAM
     Route: 048
     Dates: start: 20130221
  6. CROMATONBIC B12 [Concomitant]
     Indication: Pernicious anaemia
     Dosage: 1 MILLIGRAM
     Route: 030
     Dates: start: 20170425
  7. FOLIC ACID [Concomitant]
     Active Substance: FOLIC ACID
     Indication: Pernicious anaemia
     Dosage: 5 MILLIGRAM
     Route: 048
     Dates: start: 20171007
  8. GLYCOPYRRONIUM\INDACATEROL [Concomitant]
     Active Substance: GLYCOPYRRONIUM\INDACATEROL
     Indication: Dyspnoea
     Dosage: UNK
     Dates: start: 20170804
  9. RIVOTRIL [Concomitant]
     Active Substance: CLONAZEPAM
     Indication: Muscle spasms
     Dosage: 0.5 MILLIGRAM
     Route: 048
     Dates: start: 20180409
  10. ATORVASTATINA TARBIS [Concomitant]
     Indication: Cerebrovascular disorder
     Dosage: 40 MILLIGRAM
     Route: 048
     Dates: start: 20190116
  11. AMIODARONE HYDROCHLORIDE [Concomitant]
     Active Substance: AMIODARONE HYDROCHLORIDE
     Indication: Ventricular tachycardia
     Dosage: 200 MILLIGRAM
     Route: 048
     Dates: start: 20201114
  12. SINTROM [Concomitant]
     Active Substance: ACENOCOUMAROL
     Indication: Atrial fibrillation
     Dosage: 20 MILLIGRAM
     Route: 048
     Dates: start: 20210111
  13. NEOMYX [Concomitant]
     Indication: Benign prostatic hyperplasia
     Dosage: UNK
     Route: 048
     Dates: start: 20210417

REACTIONS (1)
  - Orthostatic hypotension [Recovered/Resolved]

NARRATIVE: CASE EVENT DATE: 20210810
